FAERS Safety Report 14267105 (Version 7)
Quarter: 2018Q1

REPORT INFORMATION
  Report Type: Spontaneous
  Country: US (occurrence: US)
  Receive Date: 20171211
  Receipt Date: 20180219
  Transmission Date: 20180508
  Serious: No
  Sender: FDA-Public Use
  Company Number: US-PFIZER INC-2017524599

PATIENT
  Sex: Female

DRUGS (2)
  1. LATANOPROST. [Suspect]
     Active Substance: LATANOPROST
     Indication: GLAUCOMA
     Dosage: 50 MCG/2.5 ML BOTTLE X 1
  2. LATANOPROST. [Suspect]
     Active Substance: LATANOPROST
     Dosage: 125 MCG/2.5 ML

REACTIONS (1)
  - Drug ineffective [Unknown]
